FAERS Safety Report 20322263 (Version 1)
Quarter: 2022Q1

REPORT INFORMATION
  Report Type: Report from Study
  Country: US (occurrence: US)
  Receive Date: 20220111
  Receipt Date: 20220111
  Transmission Date: 20220424
  Serious: Yes (Death)
  Sender: FDA-Public Use
  Company Number: US-MYLANLABS-2022M1002077

PATIENT

DRUGS (3)
  1. CLOFARABINE [Suspect]
     Active Substance: CLOFARABINE
     Indication: Acute lymphocytic leukaemia
     Dosage: TREATED ON AN INTENSIFIED HIGH-RISK ARM AND RECEIVED CCE REGIMEN AT TWO POINTS....
     Route: 065
  2. ETOPOSIDE [Suspect]
     Active Substance: ETOPOSIDE
     Indication: Acute lymphocytic leukaemia
     Dosage: TREATED ON AN INTENSIFIED HIGH-RISK ARM AND RECEIVED CCE REGIMEN AT TWO POINTS....
     Route: 065
  3. CYCLOPHOSPHAMIDE [Suspect]
     Active Substance: CYCLOPHOSPHAMIDE
     Indication: Acute lymphocytic leukaemia
     Dosage: TREATED ON AN INTENSIFIED HIGH-RISK ARM AND RECEIVED CCE REGIMEN AT TWO POINTS...
     Route: 065

REACTIONS (2)
  - Pneumonia respiratory syncytial viral [Fatal]
  - Off label use [Unknown]
